FAERS Safety Report 14360424 (Version 2)
Quarter: 2018Q2

REPORT INFORMATION
  Report Type: Spontaneous
  Country: GB (occurrence: GB)
  Receive Date: 20180106
  Receipt Date: 20180502
  Transmission Date: 20180711
  Serious: Yes (Other)
  Sender: FDA-Public Use
  Company Number: GB-SUN PHARMACEUTICAL INDUSTRIES LTD-2018R1-159242

PATIENT
  Age: 89 Year
  Sex: Female
  Weight: 83 kg

DRUGS (18)
  1. LOPERAMIDE [Concomitant]
     Active Substance: LOPERAMIDE
     Dosage: 1 DF, 2 IMMEDIATELY AND THEN 1 AFTER EACH LOOSE MOTION OR MAX 8 DAILY ; AS NECESSARY
     Route: 065
     Dates: start: 20171205, end: 20171206
  2. PREDNISOLONE. [Concomitant]
     Active Substance: PREDNISOLONE
     Dosage: 30 MG, DAILY
     Route: 065
     Dates: start: 20171026, end: 20171123
  3. VOLTAROL [Concomitant]
     Active Substance: DICLOFENAC SODIUM
     Dosage: 3 DF, APPLY
     Route: 065
     Dates: start: 20170317
  4. METANIUM [Concomitant]
     Dosage: 1 DF, APPLY ; AS NECESSARY
     Route: 065
     Dates: start: 20171130, end: 20171201
  5. ESTRADIOL. [Concomitant]
     Active Substance: ESTRADIOL
     Dosage: 1 DF, INSERT AT NIGHT
     Route: 065
     Dates: start: 20171201, end: 20171202
  6. CO-AMILOFRUSE [Concomitant]
     Active Substance: AMILORIDE\FUROSEMIDE
     Dosage: 2 DF, DAILY (MORNING)
     Route: 065
     Dates: start: 20170824
  7. CONOTRANE [Concomitant]
     Dosage: AS DIRECTED
     Route: 065
     Dates: start: 20171110, end: 20171111
  8. GLYCERYL TRINITRATE [Concomitant]
     Active Substance: NITROGLYCERIN
     Dosage: 1 DF, AS NECESSARY
     Route: 065
     Dates: start: 20170821
  9. CODEINE PHOSPHATE [Concomitant]
     Active Substance: CODEINE PHOSPHATE
     Dosage: 4 DF, DAILY
     Route: 065
     Dates: start: 20171212
  10. TRAMADOL. [Suspect]
     Active Substance: TRAMADOL
     Indication: PRODUCT USED FOR UNKNOWN INDICATION
     Dosage: UNK
     Route: 065
     Dates: start: 20170317
  11. CLONAZEPAM. [Concomitant]
     Active Substance: CLONAZEPAM
     Dosage: 0.5 DF, NIGHT
     Route: 065
     Dates: start: 20171113
  12. QUININE [Concomitant]
     Active Substance: QUININE
     Dosage: 1 DF, BEDTIME
     Route: 065
     Dates: start: 20171113
  13. FENBID [Concomitant]
     Active Substance: IBUPROFEN
     Dosage: 3 DF, DAILY (APPLY)
     Route: 065
     Dates: start: 20171123
  14. PARACETAMOL [Concomitant]
     Active Substance: ACETAMINOPHEN
     Dosage: 2 DF, FOUR TIMES A DAY ; AS NECESSARY
     Dates: start: 20170317, end: 20171206
  15. CLOTRIMAZOLE. [Concomitant]
     Active Substance: CLOTRIMAZOLE
     Dosage: APPLY 2-3 TIMES/DAY
     Route: 065
     Dates: start: 20171116, end: 20171123
  16. ACIDEX [Concomitant]
     Active Substance: CALCIUM CARBONATE\SODIUM ALGINATE\SODIUM BICARBONATE
     Dosage: 10 ML, PRN FOUR TIMES A DAY ; AS NECESSARY
     Route: 065
     Dates: start: 20170821
  17. SALBUTAMOL [Concomitant]
     Active Substance: ALBUTEROL
     Dosage: 2 DF, EVERY 4 TO 6 HOURS ; AS NECESSARY
     Route: 055
     Dates: start: 20171026, end: 20171120
  18. OMEPRAZOLE. [Concomitant]
     Active Substance: OMEPRAZOLE
     Dosage: 1 DF, DAILY
     Route: 065
     Dates: start: 20171113

REACTIONS (2)
  - Malaise [Recovered/Resolved]
  - Nausea [Recovered/Resolved]

NARRATIVE: CASE EVENT DATE: 20171212
